FAERS Safety Report 7470257-1 (Version None)
Quarter: 2011Q2

REPORT INFORMATION
  Report Type: 
  Country: None (occurrence: None)
  Receive Date: 20110510
  Receipt Date: 20110504
  Transmission Date: 20111010
  Serious: Yes (Hospitalization)
  Sender: FDA-Public Use
  Company Number: FR-KINGPHARMUSA00001-K201100490

PATIENT
  Age: 80 Year
  Sex: Female

DRUGS (6)
  1. GALVUS [Suspect]
     Indication: DIABETES MELLITUS
  2. SULFONAMIDES, UREA DERIVATIVES [Concomitant]
  3. ALTACE [Suspect]
     Indication: HYPERTENSION
     Dosage: UNK
     Route: 048
  4. ASPIRIN [Concomitant]
  5. HMG COA REDUCTASE INHIBITORS [Concomitant]
  6. ANALGESICS [Concomitant]

REACTIONS (5)
  - STOMATITIS [None]
  - OROPHARYNGEAL SWELLING [None]
  - LARYNGEAL OEDEMA [None]
  - HYPERSENSITIVITY [None]
  - LIP SWELLING [None]
